FAERS Safety Report 21026066 (Version 2)
Quarter: 2022Q2

REPORT INFORMATION
  Report Type: Spontaneous
  Country: US (occurrence: US)
  Receive Date: 20220630
  Receipt Date: 20220630
  Transmission Date: 20220720
  Serious: No
  Sender: FDA-Public Use
  Company Number: US-PFIZER INC-202200843348

PATIENT
  Age: 13 Year
  Sex: Male
  Weight: 40.82 kg

DRUGS (2)
  1. GENOTROPIN [Suspect]
     Active Substance: SOMATROPIN
     Indication: Growth hormone deficiency
     Dosage: 1.2 MG, DAILY
     Dates: start: 202012
  2. GENOTROPIN [Suspect]
     Active Substance: SOMATROPIN
     Dosage: 1 MG, DAILY

REACTIONS (5)
  - Device information output issue [Unknown]
  - Device use issue [Unknown]
  - Device breakage [Unknown]
  - Product storage error [Unknown]
  - Drug dose omission by device [Unknown]

NARRATIVE: CASE EVENT DATE: 20220614
